FAERS Safety Report 23697058 (Version 1)
Quarter: 2024Q2

REPORT INFORMATION
  Report Type: Spontaneous
  Country: US (occurrence: None)
  Receive Date: 20240401
  Receipt Date: 20240401
  Transmission Date: 20240716
  Serious: No
  Sender: FDA-Public Use
  Company Number: None

PATIENT
  Age: 9 Year
  Sex: Female
  Weight: 51.7 kg

DRUGS (1)
  1. LUPRON [Suspect]
     Active Substance: LEUPROLIDE ACETATE
     Indication: Precocious puberty
     Dosage: OTHER FREQUENCY : Q 6 MONTHS?
     Route: 030
     Dates: start: 20240202, end: 20240401

REACTIONS (5)
  - Rash [None]
  - Emotional disorder [None]
  - Feeling hot [None]
  - Feeling cold [None]
  - Paraesthesia [None]

NARRATIVE: CASE EVENT DATE: 20240203
